FAERS Safety Report 9672519 (Version 1)
Quarter: 2013Q4

REPORT INFORMATION
  Report Type: Spontaneous
  Country: US (occurrence: US)
  Receive Date: 20131106
  Receipt Date: 20131106
  Transmission Date: 20140711
  Serious: No
  Sender: FDA-Public Use
  Company Number: US-PFIZER INC-2013286526

PATIENT
  Age: 76 Year
  Sex: Male
  Weight: 61 kg

DRUGS (7)
  1. ATENOLOL [Suspect]
     Indication: HYPERTENSION
     Dosage: 50 MG, DAILY
  2. ATORVASTATIN CALCIUM [Interacting]
     Dosage: 40 MG, DAILY
  3. GLIMEPIRIDE [Interacting]
     Indication: DIABETES MELLITUS
     Dosage: 2 MG, DAILY
  4. PREPARATION H [Interacting]
     Indication: HAEMORRHOIDS
     Dosage: UNK
     Dates: start: 2012, end: 20131002
  5. DIGOXIN [Interacting]
     Indication: CARDIAC DISORDER
     Dosage: 250 UG, DAILY
  6. RANITIDINE [Interacting]
     Dosage: UNK
  7. JANUVIA [Interacting]
     Indication: DIABETES MELLITUS
     Dosage: 100 MG, DAILY

REACTIONS (2)
  - Drug interaction [Unknown]
  - Blood potassium increased [Unknown]
